FAERS Safety Report 22537951 (Version 1)
Quarter: 2023Q2

REPORT INFORMATION
  Report Type: Spontaneous
  Country: AR (occurrence: AR)
  Receive Date: 20230608
  Receipt Date: 20230608
  Transmission Date: 20230721
  Serious: Yes (Other)
  Sender: FDA-Public Use
  Company Number: AR-BoehringerIngelheim-2023-BI-241071

PATIENT
  Age: 54 Year
  Sex: Female
  Weight: 64 kg

DRUGS (4)
  1. ALTEPLASE [Suspect]
     Active Substance: ALTEPLASE
     Indication: Product used for unknown indication
     Dosage: 5.8 MG BOLUS
     Route: 040
     Dates: start: 20230506, end: 20230506
  2. ALTEPLASE [Suspect]
     Active Substance: ALTEPLASE
     Dosage: 51.8 MG B I C WERE ADMINISTERED IN ONE HOUR
     Route: 042
     Dates: start: 20230506, end: 20230506
  3. ASPIRIN [Concomitant]
     Active Substance: ASPIRIN
     Indication: Product used for unknown indication
     Dosage: IN THE MORNING
  4. ROSUVASTATIN [Concomitant]
     Active Substance: ROSUVASTATIN
     Dosage: IN THE EVENING

REACTIONS (5)
  - Headache [Not Recovered/Not Resolved]
  - Dizziness [Unknown]
  - Haematemesis [Unknown]
  - Nausea [Unknown]
  - Intracranial haematoma [Unknown]

NARRATIVE: CASE EVENT DATE: 20230511
